FAERS Safety Report 5486027-X (Version None)
Quarter: 2007Q4

REPORT INFORMATION
  Report Type: 
  Country: None (occurrence: None)
  Receive Date: 20071012
  Receipt Date: 20071008
  Transmission Date: 20080405
  Serious: Yes (Other)
  Sender: FDA-Public Use
  Company Number: 2007SP014326

PATIENT
  Age: 43 Year
  Sex: Female

DRUGS (2)
  1. PEGATRON (PEGYLATED INTERFERON ALFA-2B W/RIBAVIRIN) [Suspect]
     Indication: HEPATITIS C
     Dosage: ; SC, ;PO
  2. ANTIDEPRESSANT [Concomitant]

REACTIONS (6)
  - AMENORRHOEA [None]
  - ANOREXIA [None]
  - LETHARGY [None]
  - NAUSEA [None]
  - RECTAL HAEMORRHAGE [None]
  - VAGINAL NEOPLASM [None]
